FAERS Safety Report 4976236-8 (Version None)
Quarter: 2006Q2

REPORT INFORMATION
  Report Type: 
  Country: None (occurrence: None)
  Receive Date: 20060419
  Receipt Date: 20060411
  Transmission Date: 20061013
  Serious: Yes (Death)
  Sender: FDA-Public Use
  Company Number: US-JNJFOC-20060402992

PATIENT
  Age: 16 Year
  Sex: Female

DRUGS (2)
  1. CYCLOBENZAPRINE HCL [Suspect]
     Dosage: UNKNOWN
  2. SALICYLATE [Suspect]
     Dosage: UNKNOWN

REACTIONS (2)
  - COMPLETED SUICIDE [None]
  - MULTIPLE DRUG OVERDOSE INTENTIONAL [None]
